FAERS Safety Report 12261536 (Version 1)
Quarter: 2016Q2

REPORT INFORMATION
  Report Type: Spontaneous
  Country: DE (occurrence: DE)
  Receive Date: 20160412
  Receipt Date: 20160412
  Transmission Date: 20160815
  Serious: Yes (Hospitalization)
  Sender: FDA-Public Use
  Company Number: DE-UCBSA-2016012775

PATIENT
  Age: 28 Year
  Sex: Female
  Weight: 49 kg

DRUGS (6)
  1. VIMPAT [Suspect]
     Active Substance: LACOSAMIDE
     Dosage: 300 MG, TOTAL (100 MG 1 TABLET AND 200 MG 1 TABLET)
     Route: 048
     Dates: start: 20160406, end: 20160406
  2. TOPIRAMAT [Suspect]
     Active Substance: TOPIRAMATE
     Indication: PRODUCT USED FOR UNKNOWN INDICATION
     Dosage: 150 MG, TOTAL (100 MG 1 TABLET AND 50 MG TABLET)
     Route: 048
     Dates: start: 20160406, end: 20160406
  3. VIMPAT [Suspect]
     Active Substance: LACOSAMIDE
     Indication: PRODUCT USED FOR UNKNOWN INDICATION
     Dosage: 200 MG, ONCE DAILY (QD)
  4. PHENOBARBITAL. [Concomitant]
     Active Substance: PHENOBARBITAL
     Indication: PRODUCT USED FOR UNKNOWN INDICATION
     Dosage: 100 MG, ONCE DAILY (QD)
  5. OXCARBAZEPINE. [Suspect]
     Active Substance: OXCARBAZEPINE
     Indication: PRODUCT USED FOR UNKNOWN INDICATION
     Dosage: 300 MG, TOTAL (300 MG 1 TABLET)
     Route: 048
     Dates: start: 20160406, end: 20160406
  6. LEVETIRACETAM. [Concomitant]
     Active Substance: LEVETIRACETAM
     Indication: PRODUCT USED FOR UNKNOWN INDICATION
     Dosage: 2000 MG, ONCE DAILY (QD)

REACTIONS (2)
  - Accidental exposure to product [Unknown]
  - Agitation [Unknown]

NARRATIVE: CASE EVENT DATE: 20160406
